FAERS Safety Report 24121000 (Version 1)
Quarter: 2024Q3

REPORT INFORMATION
  Report Type: Spontaneous
  Country: US (occurrence: US)
  Receive Date: 20240722
  Receipt Date: 20240722
  Transmission Date: 20241017
  Serious: No
  Sender: PFIZER
  Company Number: US-PFIZER INC-PV202400094155

PATIENT
  Age: 38 Year
  Sex: Female

DRUGS (1)
  1. XELJANZ [Suspect]
     Active Substance: TOFACITINIB CITRATE
     Indication: Psoriatic arthropathy
     Dosage: 5 MG, 2X/DAY
     Route: 048
     Dates: start: 202406, end: 202406

REACTIONS (6)
  - Dyspnoea [Recovering/Resolving]
  - Palpitations [Recovering/Resolving]
  - Extrasystoles [Recovering/Resolving]
  - Chest pain [Recovering/Resolving]
  - Dizziness [Recovering/Resolving]
  - Visual impairment [Recovering/Resolving]

NARRATIVE: CASE EVENT DATE: 20240601
